FAERS Safety Report 7796608-6 (Version None)
Quarter: 2011Q4

REPORT INFORMATION
  Report Type: 
  Country: None (occurrence: None)
  Receive Date: 20111005
  Receipt Date: 20110923
  Transmission Date: 20120403
  Serious: Yes (Other)
  Sender: FDA-Public Use
  Company Number: US-ELI_LILLY_AND_COMPANY-US201109007228

PATIENT
  Age: 71 Year
  Sex: Female
  Weight: 72.5 kg

DRUGS (12)
  1. MULTI-VITAMIN [Concomitant]
     Indication: VITAMIN SUPPLEMENTATION
     Dosage: UNK, QD
     Route: 048
  2. LEVOTHROID [Concomitant]
     Indication: HYPOTHYROIDISM
     Dosage: 75 UG, QD
     Route: 048
  3. BENICAR [Concomitant]
     Indication: HYPERTENSION
     Dosage: 40 MG, QD
     Route: 048
  4. OLANZAPINE [Suspect]
     Indication: DEPRESSION
     Dosage: 10 MG, QD
     Route: 048
  5. PRISTIQ [Concomitant]
     Indication: DEPRESSION
     Dosage: 50 MG, QOD
     Route: 048
     Dates: start: 20110901
  6. TOPROL-XL [Concomitant]
     Indication: HYPERTENSION
     Dosage: 50 MG, QD
     Route: 048
  7. LEXAPRO [Concomitant]
     Indication: DEPRESSION
     Dosage: 10 MG, QD
  8. TRAZODONE HYDROCHLORIDE [Concomitant]
     Indication: DEPRESSION
     Dosage: 300 MG, QD
  9. CYMBALTA [Suspect]
     Indication: DEPRESSION
     Dosage: 30 MG, QD
     Route: 048
     Dates: end: 20110907
  10. ATIVAN [Concomitant]
     Indication: ANXIETY
     Dosage: 0.5 MG, BID
     Route: 048
  11. VITAMIN D [Concomitant]
     Indication: VITAMIN SUPPLEMENTATION
     Dosage: 4000 IU, QD
     Route: 048
  12. LOVAZA [Concomitant]
     Indication: SUPPLEMENTATION THERAPY
     Dosage: 600 MG, BID

REACTIONS (3)
  - OFF LABEL USE [None]
  - SEROTONIN SYNDROME [None]
  - MULTIPLE SCLEROSIS [None]
